FAERS Safety Report 7727651-0 (Version None)
Quarter: 2011Q3

REPORT INFORMATION
  Report Type: 
  Country: None (occurrence: None)
  Receive Date: 20110902
  Receipt Date: 20110830
  Transmission Date: 20111222
  Serious: Yes (Hospitalization, Other)
  Sender: FDA-Public Use
  Company Number: DE-PFIZER INC-2011158485

PATIENT
  Age: 48 Year
  Sex: Male
  Weight: 100 kg

DRUGS (2)
  1. PARACETAMOL [Concomitant]
     Dosage: UNK
  2. SUNITINIB MALATE [Suspect]
     Indication: METASTATIC RENAL CELL CARCINOMA
     Dosage: 50 MG, BIWEEKLY
     Route: 048
     Dates: start: 20101110, end: 20110605

REACTIONS (5)
  - JAUNDICE [None]
  - ABDOMINAL PAIN UPPER [None]
  - CHOLESTASIS [None]
  - EROSIVE OESOPHAGITIS [None]
  - HAEMATEMESIS [None]
